FAERS Safety Report 5663536-1 (Version None)
Quarter: 2008Q1

REPORT INFORMATION
  Report Type: 
  Country: None (occurrence: None)
  Receive Date: 20080307
  Receipt Date: 20080223
  Transmission Date: 20080703
  Serious: Yes (Life-Threatening, Hospitalization, Other)
  Sender: FDA-Public Use
  Company Number: 2008S1003249

PATIENT
  Age: 78 Year
  Sex: Female
  Weight: 63.5036 kg

DRUGS (2)
  1. NADOLOL [Suspect]
     Indication: HYPERTENSION
     Dosage: 40 MG;ONCE;ORAL
     Route: 048
     Dates: start: 20080216, end: 20080216
  2. ESOMEPRAZOLE MAGNESIUM [Concomitant]

REACTIONS (5)
  - CARDIAC ARREST [None]
  - DIZZINESS [None]
  - EJECTION FRACTION DECREASED [None]
  - OVERDOSE [None]
  - SYNCOPE [None]
